FAERS Safety Report 4850494-2 (Version None)
Quarter: 2005Q4

REPORT INFORMATION
  Report Type: 
  Country: None (occurrence: None)
  Receive Date: 20051125
  Receipt Date: 20050912
  Transmission Date: 20060501
  Serious: Yes (Other)
  Sender: FDA-Public Use
  Company Number: HQWYE517619SEP05

PATIENT
  Age: 45 Year
  Sex: Female
  Weight: 63.56 kg

DRUGS (1)
  1. PREMARIN [Suspect]
     Indication: MENOPAUSAL SYMPTOMS
     Dosage: VAGINAL
     Route: 067
     Dates: start: 20050508, end: 20050510

REACTIONS (3)
  - BLISTER [None]
  - DERMATITIS CONTACT [None]
  - PAIN [None]
